FAERS Safety Report 13361802 (Version 1)
Quarter: 2017Q1

REPORT INFORMATION
  Report Type: Spontaneous
  Country: US (occurrence: US)
  Receive Date: 20170321
  Receipt Date: 20170321
  Transmission Date: 20170429
  Serious: Yes (Other)
  Sender: FDA-Public Use
  Company Number: None

PATIENT
  Age: 71 Year
  Sex: Female

DRUGS (1)
  1. REVLIMID [Suspect]
     Active Substance: LENALIDOMIDE
     Indication: PLASMA CELL MYELOMA
     Dosage: 10MG DAILY X21D/28D ORAL?3 CYCLES
     Route: 048

REACTIONS (2)
  - Anal incontinence [None]
  - Stomatitis [None]

NARRATIVE: CASE EVENT DATE: 20130522
